FAERS Safety Report 11063114 (Version 1)
Quarter: 2015Q2

REPORT INFORMATION
  Report Type: Spontaneous
  Country: US (occurrence: US)
  Receive Date: 20150424
  Receipt Date: 20150424
  Transmission Date: 20150821
  Serious: Yes (Hospitalization, Other)
  Sender: FDA-Public Use
  Company Number: US-SA-2015SA049819

PATIENT
  Age: 78 Year
  Sex: Male
  Weight: 101 kg

DRUGS (15)
  1. PROVENGE [Suspect]
     Active Substance: SIPULEUCEL-T
     Indication: PROSTATE CANCER METASTATIC
     Route: 042
     Dates: start: 20150115, end: 20150115
  2. ZYTIGA [Concomitant]
     Active Substance: ABIRATERONE ACETATE
  3. TAMSULOSIN HYDROCHLORIDE. [Concomitant]
     Active Substance: TAMSULOSIN HYDROCHLORIDE
  4. LEVOTHYROXINE [Concomitant]
     Active Substance: LEVOTHYROXINE
  5. PREDNISONE ACETATE [Concomitant]
     Active Substance: PREDNISONE ACETATE
  6. ATORVASTATIN CALCIUM. [Concomitant]
     Active Substance: ATORVASTATIN CALCIUM
  7. POTASSIUM CHLORIDE. [Concomitant]
     Active Substance: POTASSIUM CHLORIDE
  8. PROVENGE [Suspect]
     Active Substance: SIPULEUCEL-T
     Indication: PROSTATE CANCER METASTATIC
     Route: 042
     Dates: start: 20150205, end: 20150205
  9. JANTOVEN [Concomitant]
     Active Substance: WARFARIN SODIUM
  10. FENTANYL. [Concomitant]
     Active Substance: FENTANYL
  11. OMEPRAZOLE. [Concomitant]
     Active Substance: OMEPRAZOLE
  12. RAMIPRIL. [Concomitant]
     Active Substance: RAMIPRIL
  13. LASIX [Suspect]
     Active Substance: FUROSEMIDE
     Indication: PRODUCT USED FOR UNKNOWN INDICATION
     Route: 065
  14. SIMVASTATIN. [Concomitant]
     Active Substance: SIMVASTATIN
  15. GLYBURIDE. [Concomitant]
     Active Substance: GLYBURIDE

REACTIONS (9)
  - Hypovolaemia [Recovered/Resolved]
  - Hypotension [Recovered/Resolved]
  - Blood pressure decreased [Recovered/Resolved]
  - Vascular graft occlusion [Not Recovered/Not Resolved]
  - Arthralgia [Unknown]
  - Fall [Unknown]
  - Skin abrasion [Unknown]
  - Dyspnoea [Recovered/Resolved]
  - Dizziness [Recovered/Resolved]

NARRATIVE: CASE EVENT DATE: 20150205
